FAERS Safety Report 24723897 (Version 2)
Quarter: 2025Q1

REPORT INFORMATION
  Report Type: Spontaneous
  Country: US (occurrence: US)
  Receive Date: 20241211
  Receipt Date: 20250318
  Transmission Date: 20250408
  Serious: No
  Sender: Unknown Manufacturer
  Company Number: US-THERATECHNOLOGIES INC.-2024-THE-TES-000498

PATIENT

DRUGS (1)
  1. EGRIFTA SV [Suspect]
     Active Substance: TESAMORELIN ACETATE
     Indication: Lipodystrophy acquired
     Dosage: 1.4 MG, 0.35 ML OF THE RECONSTITUTED SOLUTION,QD
     Route: 058
     Dates: start: 202411

REACTIONS (3)
  - Eructation [Not Recovered/Not Resolved]
  - Incorrect dose administered [Unknown]
  - Joint swelling [Unknown]

NARRATIVE: CASE EVENT DATE: 20241101
